FAERS Safety Report 18979760 (Version 1)
Quarter: 2021Q1

REPORT INFORMATION
  Report Type: Spontaneous
  Country: US (occurrence: US)
  Receive Date: 20210308
  Receipt Date: 20210308
  Transmission Date: 20210420
  Serious: No
  Sender: FDA-Public Use
  Company Number: US-ORGANON-2012USA003794

PATIENT

DRUGS (3)
  1. ASMANEX [Suspect]
     Active Substance: MOMETASONE FUROATE
     Dosage: UNK
  2. ASMANEX [Suspect]
     Active Substance: MOMETASONE FUROATE
     Dosage: 2 PUFFS TWICE DAILY, 120DOSE
     Dates: start: 202011
  3. ASMANEX [Suspect]
     Active Substance: MOMETASONE FUROATE
     Dosage: 220 MICROGRAM, TWICE DAILY (BID)
     Dates: start: 202102

REACTIONS (7)
  - No adverse event [Unknown]
  - Poor quality device used [Unknown]
  - Poor quality device used [Unknown]
  - Product dose omission issue [Unknown]
  - Product dose omission issue [Unknown]
  - Device malfunction [Unknown]
  - Device malfunction [Unknown]

NARRATIVE: CASE EVENT DATE: 20201204
